FAERS Safety Report 12800151 (Version 1)
Quarter: 2016Q3

REPORT INFORMATION
  Report Type: Spontaneous
  Country: US (occurrence: US)
  Receive Date: 20160930
  Receipt Date: 20160930
  Transmission Date: 20161109
  Serious: No
  Sender: FDA-Public Use
  Company Number: US-SHIRE-US201613570

PATIENT
  Sex: Male
  Weight: 28.3 kg

DRUGS (1)
  1. NATPARA (PARATHYROID HORMONE) [Suspect]
     Active Substance: PARATHYROID HORMONE
     Indication: HYPOPARATHYROIDISM
     Dosage: 11.25 ?G, 2X/DAY:BID
     Route: 057
     Dates: start: 201603

REACTIONS (2)
  - Inappropriate schedule of drug administration [Unknown]
  - Hypocalcaemia [Unknown]
